FAERS Safety Report 6427639-6 (Version None)
Quarter: 2009Q4

REPORT INFORMATION
  Report Type: 
  Country: None (occurrence: None)
  Receive Date: 20091104
  Receipt Date: 20091030
  Transmission Date: 20100525
  Serious: Yes (Death)
  Sender: FDA-Public Use
  Company Number: US-GILEAD-2009-0024959

PATIENT
  Sex: Male
  Weight: 78.542 kg

DRUGS (12)
  1. LETAIRIS [Suspect]
     Indication: PULMONARY ARTERIAL HYPERTENSION
     Route: 048
     Dates: start: 20090814
  2. REVATIO [Concomitant]
  3. COUMADIN [Concomitant]
  4. PREDNISONE TAB [Concomitant]
  5. ALBUTEROL 0.083% SOLUTION [Concomitant]
  6. DUONEB [Concomitant]
  7. SINGULAIR [Concomitant]
  8. MUCINEX [Concomitant]
  9. HYDROCODONE BITARTRATE AND ACETAMINOPHEN [Concomitant]
  10. FLEXERIL [Concomitant]
  11. PRILOSEC [Concomitant]
  12. OYSTER SHELL WITH VITAMIN D [Concomitant]

REACTIONS (1)
  - RESPIRATORY FAILURE [None]
